FAERS Safety Report 8049913-2 (Version None)
Quarter: 2012Q1

REPORT INFORMATION
  Report Type: 
  Country: None (occurrence: None)
  Receive Date: 20120117
  Receipt Date: 20120109
  Transmission Date: 20120608
  Serious: Yes (Life-Threatening, Hospitalization, Other)
  Sender: FDA-Public Use
  Company Number: US-BAYER-2011-047483

PATIENT
  Age: 26 Year
  Sex: Female
  Weight: 68 kg

DRUGS (13)
  1. NORCO [Concomitant]
  2. DROSPIRENONE AND ETHINYL ESTRADIOL [Suspect]
     Indication: ACNE
  3. DROSPIRENONE AND ETHINYL ESTRADIOL [Suspect]
     Indication: CONTRACEPTION
     Dosage: UNK
     Route: 048
     Dates: start: 20040101, end: 20090601
  4. YASMIN [Suspect]
     Indication: UNEVALUABLE EVENT
  5. DROSPIRENONE AND ETHINYL ESTRADIOL [Suspect]
     Indication: UNEVALUABLE EVENT
  6. RANITIDINE [Concomitant]
     Dosage: 15 MG/ML SYRUP
     Route: 048
     Dates: start: 20031015, end: 20080618
  7. YASMIN [Suspect]
     Indication: ACNE
  8. RANITIDINE [Concomitant]
     Dosage: 150 MG, UNK
     Route: 048
     Dates: start: 20031015, end: 20080618
  9. OMEPRAZOLE [Concomitant]
     Dosage: 20 MG, UNK
     Route: 048
     Dates: start: 20070115
  10. FAMOTIDINE [Concomitant]
  11. VICODIN [Concomitant]
  12. YASMIN [Suspect]
     Indication: CONTRACEPTION
     Dosage: UNK
     Route: 048
     Dates: start: 20040101, end: 20090601
  13. CLARITIN [Concomitant]
     Dosage: 10 MG, EVERY NIGHT
     Route: 048
     Dates: start: 20070302

REACTIONS (11)
  - INTERNAL INJURY [None]
  - INJURY [None]
  - GENERAL PHYSICAL HEALTH DETERIORATION [None]
  - GALLBLADDER NON-FUNCTIONING [None]
  - ANHEDONIA [None]
  - DEEP VEIN THROMBOSIS [None]
  - CHOLECYSTITIS CHRONIC [None]
  - THROMBOSIS [None]
  - PAIN [None]
  - ORGAN FAILURE [None]
  - ANXIETY [None]
